FAERS Safety Report 15679414 (Version 1)
Quarter: 2018Q4

REPORT INFORMATION
  Report Type: Spontaneous
  Country: US (occurrence: US)
  Receive Date: 20181203
  Receipt Date: 20181203
  Transmission Date: 20190205
  Serious: No
  Sender: FDA-Public Use
  Company Number: US-009507513-1811USA007766

PATIENT
  Sex: Female
  Weight: 74.2 kg

DRUGS (1)
  1. NEXPLANON [Suspect]
     Active Substance: ETONOGESTREL
     Dosage: 1 IMPLANT, UNK
     Route: 059
     Dates: end: 201811

REACTIONS (3)
  - Product quality issue [Unknown]
  - Vaginal haemorrhage [Unknown]
  - Device breakage [Recovered/Resolved]
